FAERS Safety Report 4296957-2 (Version None)
Quarter: 2004Q1

REPORT INFORMATION
  Report Type: 
  Country: None (occurrence: None)
  Receive Date: 20040213
  Receipt Date: 20040210
  Transmission Date: 20041129
  Serious: Yes (Other)
  Sender: FDA-Public Use
  Company Number: 028-20785-04020294

PATIENT
  Age: 46 Year
  Sex: Female

DRUGS (1)
  1. THALOMID [Suspect]
     Indication: MULTIPLE MYELOMA
     Dosage: 100 MG, QHS, ORAL
     Route: 048

REACTIONS (1)
  - BLOOD HUMAN CHORIONIC GONADOTROPIN INCREASED [None]
